FAERS Safety Report 14029008 (Version 2)
Quarter: 2019Q4

REPORT INFORMATION
  Report Type: Spontaneous
  Country: US (occurrence: US)
  Receive Date: 20170930
  Receipt Date: 20191205
  Transmission Date: 20200122
  Serious: No
  Sender: FDA-Public Use
  Company Number: US-SA-2017SA080209

PATIENT
  Sex: Female

DRUGS (10)
  1. FLUCONAZOLE. [Concomitant]
     Active Substance: FLUCONAZOLE
     Dosage: UNK
  2. REBIF [Concomitant]
     Active Substance: INTERFERON BETA-1A
     Dosage: UNK
  3. AUBAGIO [Suspect]
     Active Substance: TERIFLUNOMIDE
     Indication: MULTIPLE SCLEROSIS
     Dosage: 1 DF,QD/WITH OR WITHOUT FOOD
     Route: 048
  4. VESICARE [Concomitant]
     Active Substance: SOLIFENACIN SUCCINATE
     Dosage: UNK
  5. LEXAPRO [Concomitant]
     Active Substance: ESCITALOPRAM OXALATE
  6. LOW-OGESTREL [Concomitant]
     Active Substance: ETHINYL ESTRADIOL\NORGESTREL
     Dosage: UNK
  7. ELINEST [Concomitant]
     Active Substance: ETHINYL ESTRADIOL\NORGESTREL
     Dosage: UNK
  8. NITROFURANTOIN. [Concomitant]
     Active Substance: NITROFURANTOIN
     Dosage: UNK
  9. AZITHROMYCIN ANHYDROUS. [Concomitant]
     Active Substance: AZITHROMYCIN ANHYDROUS
     Dosage: UNK
  10. VITAMIN D [VITAMIN D NOS] [Concomitant]
     Active Substance: VITAMIN D NOS

REACTIONS (2)
  - Alopecia [Not Recovered/Not Resolved]
  - Product dose omission [Unknown]
